FAERS Safety Report 8803454 (Version 4)
Quarter: 2014Q1

REPORT INFORMATION
  Report Type: Report from Study
  Country: FI (occurrence: FI)
  Receive Date: 20120924
  Receipt Date: 20140307
  Transmission Date: 20141002
  Serious: Yes (Hospitalization)
  Sender: FDA-Public Use
  Company Number: FI-ELI_LILLY_AND_COMPANY-FI201209003479

PATIENT
  Age: 70 Year
  Sex: Female

DRUGS (18)
  1. TERIPARATIDE [Suspect]
     Indication: OSTEOPOROSIS
     Dosage: 20 UG, QD
     Route: 058
     Dates: start: 201112
  2. SERETIDE [Concomitant]
     Indication: ASTHMA
     Dosage: UNK
  3. SINGULAIR [Concomitant]
     Indication: ASTHMA
     Dosage: UNK
  4. SPIRIVA [Concomitant]
     Indication: ASTHMA
     Dosage: UNK
  5. BRICANYL [Concomitant]
     Indication: ASTHMA
     Dosage: UNK
  6. CORTISONE [Concomitant]
     Indication: ASTHMA
     Dosage: 4 MG, UNK
  7. IPRAMOL [Concomitant]
     Indication: ASTHMA
     Dosage: UNK
  8. RACEPINEPHRINE [Concomitant]
     Indication: ASTHMA
     Dosage: UNK
  9. PULMICORT [Concomitant]
     Indication: ASTHMA
     Dosage: UNK
  10. AMLODIPIN                          /00972401/ [Concomitant]
     Indication: HYPERTENSION
     Dosage: UNK
  11. LOSATRIX [Concomitant]
     Indication: HYPERTENSION
     Dosage: UNK
  12. MAREVAN [Concomitant]
     Indication: ANTICOAGULANT THERAPY
     Dosage: 3 MG, UNK
  13. EMCONCOR [Concomitant]
     Indication: HYPERTENSION
     Dosage: UNK
  14. SIMVASTATIN [Concomitant]
     Indication: BLOOD CHOLESTEROL
     Dosage: 20 MG, UNK
  15. PANADOL [Concomitant]
     Indication: PAIN
     Dosage: UNK
  16. ARCOXIA [Concomitant]
     Indication: PAIN
     Dosage: 90 MG, UNK
  17. PANADOL [Concomitant]
     Indication: PAIN
     Dosage: UNK
  18. CALCI CHEW D3 [Concomitant]
     Indication: NUTRITIONAL SUPPLEMENTATION
     Dosage: UNK

REACTIONS (9)
  - Road traffic accident [Not Recovered/Not Resolved]
  - Blood blister [Not Recovered/Not Resolved]
  - Blister [Not Recovered/Not Resolved]
  - Nerve injury [Not Recovered/Not Resolved]
  - Local swelling [Not Recovered/Not Resolved]
  - Musculoskeletal chest pain [Not Recovered/Not Resolved]
  - Dyspnoea [Not Recovered/Not Resolved]
  - Pain in extremity [Not Recovered/Not Resolved]
  - Wound [Not Recovered/Not Resolved]
